FAERS Safety Report 5276625-0 (Version None)
Quarter: 2007Q1

REPORT INFORMATION
  Report Type: 
  Country: None (occurrence: None)
  Receive Date: 20070327
  Receipt Date: 20070313
  Transmission Date: 20070707
  Serious: No
  Sender: FDA-Public Use
  Company Number: US-ELI_LILLY_AND_COMPANY-US200703002961

PATIENT
  Age: 15 Year
  Sex: Female

DRUGS (4)
  1. ZYPREXA [Suspect]
     Dosage: 15 MG, DAILY (1/D)
     Dates: start: 20061201
  2. SEROQUEL [Concomitant]
     Dosage: 600 MG, UNK
  3. TOPAMAX [Concomitant]
  4. RISPERDAL [Concomitant]

REACTIONS (1)
  - NEUTROPHIL COUNT DECREASED [None]
